FAERS Safety Report 9255698 (Version 1)
Quarter: 2013Q2

REPORT INFORMATION
  Report Type: Spontaneous
  Country: IT (occurrence: IT)
  Receive Date: 20130425
  Receipt Date: 20130425
  Transmission Date: 20140414
  Serious: Yes (Other)
  Sender: FDA-Public Use
  Company Number: IT-TEVA-399239ISR

PATIENT
  Age: 30 Year
  Sex: Male

DRUGS (1)
  1. AMOXICILLINA TRIIDRATO [Suspect]
     Dosage: 2 GRAM DAILY;
     Route: 048
     Dates: start: 20130201, end: 20130203

REACTIONS (1)
  - Hypoacusis [Recovered/Resolved]
